FAERS Safety Report 9353992 (Version 1)
Quarter: 2013Q2

REPORT INFORMATION
  Report Type: Spontaneous
  Country: JP (occurrence: JP)
  Receive Date: 20130618
  Receipt Date: 20130618
  Transmission Date: 20140414
  Serious: Yes (Other)
  Sender: FDA-Public Use
  Company Number: PHHY2013JP060870

PATIENT
  Age: 15 Year
  Sex: Male

DRUGS (4)
  1. PROCAINAMIDE [Suspect]
     Indication: ATRIAL TACHYCARDIA
     Dosage: 5 MG/KG, UNK
     Route: 042
  2. DIGOXIN [Suspect]
  3. DISOPYRAMIDE [Suspect]
     Indication: ATRIAL TACHYCARDIA
     Dosage: 1 MG/KG, UNK
     Route: 042
  4. LANDIOLOL [Suspect]

REACTIONS (8)
  - Electrocardiogram QT prolonged [Recovering/Resolving]
  - Torsade de pointes [Recovering/Resolving]
  - Loss of consciousness [Recovering/Resolving]
  - Tachycardia [Unknown]
  - Atrial tachycardia [Recovering/Resolving]
  - Ventricular extrasystoles [Recovering/Resolving]
  - Syncope [Recovering/Resolving]
  - Bradycardia [Unknown]
